FAERS Safety Report 4714120-5 (Version None)
Quarter: 2005Q3

REPORT INFORMATION
  Report Type: 
  Country: None (occurrence: None)
  Receive Date: 20050714
  Receipt Date: 20050622
  Transmission Date: 20060218
  Serious: Yes (Hospitalization)
  Sender: FDA-Public Use
  Company Number: FR-NOVOPROD-245004

PATIENT
  Age: 48 Year
  Sex: Female

DRUGS (3)
  1. NORDITROPIN SIMPLEXX [Suspect]
     Indication: GROWTH HORMONE DEFICIENCY
     Dates: start: 20050307, end: 20050620
  2. HYDROCORTISONE [Concomitant]
     Dosage: 20 MG, UNK
     Route: 048
     Dates: start: 20040301
  3. LEVOTHYROX [Concomitant]
     Dosage: 125 MG, UNK
     Route: 048
     Dates: end: 20031101

REACTIONS (1)
  - BREAST CANCER STAGE II [None]
